FAERS Safety Report 12154823 (Version 1)
Quarter: 2016Q1

REPORT INFORMATION
  Report Type: Spontaneous
  Country: US (occurrence: None)
  Receive Date: 20160304
  Receipt Date: 20160304
  Transmission Date: 20160526
  Serious: Yes (Death)
  Sender: FDA-Public Use
  Company Number: None

PATIENT
  Age: 88 Year
  Sex: Female

DRUGS (2)
  1. TRACLEER [Suspect]
     Active Substance: BOSENTAN
     Indication: CONNECTIVE TISSUE DISORDER
     Route: 048
     Dates: start: 20141205, end: 20160227
  2. TRACLEER [Suspect]
     Active Substance: BOSENTAN
     Indication: HEART DISEASE CONGENITAL
     Route: 048
     Dates: start: 20141205, end: 20160227

REACTIONS (9)
  - Seizure [None]
  - Dizziness [None]
  - Urinary tract infection [None]
  - Hypotension [None]
  - Fall [None]
  - Syncope [None]
  - Humerus fracture [None]
  - Delirium [None]
  - Sepsis [None]

NARRATIVE: CASE EVENT DATE: 20160227
